FAERS Safety Report 6064938-4 (Version None)
Quarter: 2009Q1

REPORT INFORMATION
  Report Type: 
  Country: None (occurrence: None)
  Receive Date: 20090204
  Receipt Date: 20090202
  Transmission Date: 20090719
  Serious: Yes (Other)
  Sender: FDA-Public Use
  Company Number: US-MERCK-0901USA01204

PATIENT
  Age: 36 Month
  Sex: Female
  Weight: 23 kg

DRUGS (4)
  1. SINGULAIR [Suspect]
     Indication: ASTHMA
     Route: 048
     Dates: start: 20040101, end: 20080101
  2. ALBUTEROL [Concomitant]
     Route: 065
  3. VITAMINS (UNSPECIFIED) [Concomitant]
     Route: 065
  4. FLOVENT [Concomitant]
     Route: 065

REACTIONS (3)
  - DEPRESSED MOOD [None]
  - OVERDOSE [None]
  - SUICIDAL IDEATION [None]
